FAERS Safety Report 19069338 (Version 2)
Quarter: 2021Q2

REPORT INFORMATION
  Report Type: Spontaneous
  Country: RU (occurrence: RU)
  Receive Date: 20210329
  Receipt Date: 20210410
  Transmission Date: 20210717
  Serious: Yes (Other)
  Sender: FDA-Public Use
  Company Number: NVSC2021RU069158

PATIENT
  Age: 46 Year
  Sex: Female

DRUGS (6)
  1. TRAMETINIB [Suspect]
     Active Substance: TRAMETINIB
     Indication: MALIGNANT MELANOMA
     Dosage: 2.0 MG, QD (TOTAL 11 COURSES)
     Route: 065
     Dates: start: 20171201, end: 20181203
  2. DABRAFENIB [Suspect]
     Active Substance: DABRAFENIB
     Indication: MALIGNANT MELANOMA
     Dosage: 150 MG, BID (TOTAL 11 COURSES)
     Route: 065
     Dates: start: 20171201, end: 20181203
  3. TRAMETINIB [Suspect]
     Active Substance: TRAMETINIB
     Dosage: UNK
     Route: 065
     Dates: start: 20190124
  4. TRAMETINIB [Suspect]
     Active Substance: TRAMETINIB
     Dosage: 2.0 MG, QD
     Route: 065
     Dates: start: 20191106, end: 202001
  5. DABRAFENIB [Suspect]
     Active Substance: DABRAFENIB
     Dosage: UNK
     Route: 065
     Dates: start: 20190124
  6. DABRAFENIB [Suspect]
     Active Substance: DABRAFENIB
     Dosage: 150 MG, BID
     Route: 065
     Dates: start: 20191106, end: 202001

REACTIONS (11)
  - Metastases to central nervous system [Unknown]
  - Dizziness [Unknown]
  - Asthenia [Unknown]
  - Hepatitis [Unknown]
  - Dry mouth [Unknown]
  - Oedema peripheral [Unknown]
  - Nausea [Unknown]
  - Hepatotoxicity [Unknown]
  - Inguinal mass [Unknown]
  - Fatigue [Unknown]
  - Pyrexia [Unknown]

NARRATIVE: CASE EVENT DATE: 201811
